FAERS Safety Report 10440524 (Version 1)
Quarter: 2014Q3

REPORT INFORMATION
  Report Type: Spontaneous
  Country: GB (occurrence: GB)
  Receive Date: 20140909
  Receipt Date: 20140909
  Transmission Date: 20150326
  Serious: Yes (Life-Threatening, Hospitalization)
  Sender: FDA-Public Use
  Company Number: GB-ACCORD-025764

PATIENT
  Age: 82 Year
  Sex: Female
  Weight: 95 kg

DRUGS (3)
  1. CLOPIDOGREL [Suspect]
     Active Substance: CLOPIDOGREL BISULFATE
     Indication: CORONARY ARTERY DISEASE
     Dosage: 75 MG ONCE DAILY
     Route: 048
     Dates: start: 20140821, end: 20140823
  2. SIMVASTATIN. [Concomitant]
     Active Substance: SIMVASTATIN
  3. PERINDOPRIL/PERINDOPRIL ERBUMINE [Concomitant]

REACTIONS (2)
  - Gastrointestinal ulcer haemorrhage [Recovered/Resolved]
  - Inappropriate schedule of drug administration [Unknown]

NARRATIVE: CASE EVENT DATE: 20140823
